FAERS Safety Report 5483006-3 (Version None)
Quarter: 2007Q4

REPORT INFORMATION
  Report Type: 
  Country: None (occurrence: None)
  Receive Date: 20071011
  Receipt Date: 20070927
  Transmission Date: 20080405
  Serious: No
  Sender: FDA-Public Use
  Company Number: US-BOEHRINGER INGELHEIM PHARMACEUTICALS, INC.-2007-BP-17371BP

PATIENT
  Sex: Male

DRUGS (14)
  1. SPIRIVA [Suspect]
     Indication: CHRONIC OBSTRUCTIVE PULMONARY DISEASE
     Route: 055
     Dates: start: 20070413
  2. REQUIP [Concomitant]
     Indication: RESTLESS LEGS SYNDROME
  3. MUCINEX [Concomitant]
     Indication: INCREASED BRONCHIAL SECRETION
  4. CELEBREX [Concomitant]
     Indication: PAIN
  5. LORTAB [Concomitant]
     Indication: CLUSTER HEADACHE
  6. LEXAPRO [Concomitant]
     Indication: ANXIETY
  7. GLIPIZIDE [Concomitant]
     Indication: DIABETES MELLITUS
  8. RIFAMPIN [Concomitant]
     Indication: TUBERCULOSIS
  9. ZITHROMAX [Concomitant]
     Indication: TUBERCULOSIS
  10. ETHAMBUTOL HCL [Concomitant]
     Indication: TUBERCULOSIS
  11. NEBULIZED MEDICATIONS [Concomitant]
     Indication: CHRONIC OBSTRUCTIVE PULMONARY DISEASE
  12. UROXATRAL [Concomitant]
     Indication: BENIGN PROSTATIC HYPERPLASIA
  13. FLEXERIL [Concomitant]
     Indication: MUSCLE SPASMS
  14. NORVASC [Concomitant]
     Indication: HYPERTENSION

REACTIONS (1)
  - DRUG EFFECT DECREASED [None]
